FAERS Safety Report 15700275 (Version 1)
Quarter: 2018Q4

REPORT INFORMATION
  Report Type: Spontaneous
  Country: TR (occurrence: TR)
  Receive Date: 20181207
  Receipt Date: 20181207
  Transmission Date: 20190205
  Serious: Yes (Other)
  Sender: FDA-Public Use
  Company Number: TR-BAUSCH-BL-2018-033832

PATIENT
  Age: 26 Year
  Sex: Female

DRUGS (5)
  1. MEROPENEM. [Suspect]
     Active Substance: MEROPENEM
     Indication: LEMIERRE SYNDROME
     Route: 065
  2. LINEZOLID. [Suspect]
     Active Substance: LINEZOLID
     Indication: LEMIERRE SYNDROME
     Route: 065
  3. LEVOFLOXACIN. [Suspect]
     Active Substance: LEVOFLOXACIN
     Indication: LEMIERRE SYNDROME
     Route: 065
  4. DOXICYCLINE /00055701/ [Suspect]
     Active Substance: DOXYCYCLINE
     Indication: LEMIERRE SYNDROME
     Route: 065
  5. METRONIDAZOLE. [Suspect]
     Active Substance: METRONIDAZOLE
     Indication: LEMIERRE SYNDROME
     Route: 065

REACTIONS (1)
  - Therapy non-responder [Unknown]
